FAERS Safety Report 23532360 (Version 4)
Quarter: 2024Q1

REPORT INFORMATION
  Report Type: Spontaneous
  Country: JP (occurrence: JP)
  Receive Date: 20240216
  Receipt Date: 20240326
  Transmission Date: 20240409
  Serious: Yes (Disabling, Other)
  Sender: FDA-Public Use
  Company Number: JP-ABBVIE-5642817

PATIENT
  Age: 77 Year
  Sex: Female

DRUGS (5)
  1. BRIMONIDINE TARTRATE [Suspect]
     Active Substance: BRIMONIDINE TARTRATE
     Indication: Product used for unknown indication
     Dosage: 0.1%
     Route: 047
  2. LUMIGAN [Suspect]
     Active Substance: BIMATOPROST
     Indication: Glaucoma
     Dosage: 0.03%
     Route: 047
     Dates: start: 20220513
  3. RIPASUDIL HYDROCHLORIDE DIHYDRATE [Suspect]
     Active Substance: RIPASUDIL HYDROCHLORIDE DIHYDRATE
     Indication: Glaucoma
     Dosage: 2 DROPS
     Route: 047
     Dates: start: 20220513
  4. TRUSOPT [Concomitant]
     Active Substance: DORZOLAMIDE HYDROCHLORIDE
     Indication: Glaucoma
     Dosage: TIME INTERVAL: 0.33333333 DAYS: 3 DROPS?END DATE: MAY 2022
     Route: 047
     Dates: start: 20220513
  5. TRUSOPT [Concomitant]
     Active Substance: DORZOLAMIDE HYDROCHLORIDE
     Indication: Glaucoma
     Dosage: TIME INTERVAL: 0.33333333 DAYS
     Route: 047
     Dates: start: 20220517

REACTIONS (4)
  - Corneal opacity [Not Recovered/Not Resolved]
  - Corneal neovascularisation [Recovered/Resolved]
  - Corneal oedema [Unknown]
  - Conjunctivitis [Unknown]

NARRATIVE: CASE EVENT DATE: 20220513
